FAERS Safety Report 13054707 (Version 1)
Quarter: 2016Q4

REPORT INFORMATION
  Report Type: Report from Study
  Country: DE (occurrence: DE)
  Receive Date: 20161222
  Receipt Date: 20161222
  Transmission Date: 20170207
  Serious: Yes (Life-Threatening, Hospitalization)
  Sender: FDA-Public Use
  Company Number: DE-TEVA-722433GER

PATIENT
  Age: 75 Year
  Sex: Male

DRUGS (53)
  1. TRAVEGIL [Concomitant]
     Dosage: 2 MILLIGRAM DAILY;
     Route: 042
     Dates: start: 20140204, end: 20160204
  2. TRAVEGIL [Concomitant]
     Dosage: 2 MILLIGRAM DAILY;
     Route: 042
     Dates: start: 20140219, end: 20160219
  3. MESNA. [Concomitant]
     Active Substance: MESNA
     Dosage: 1200 MILLIGRAM DAILY;
     Route: 042
     Dates: start: 20140219, end: 20140219
  4. AMPHO MORONAL [Concomitant]
     Active Substance: AMPHOTERICIN B
     Dates: start: 20130613, end: 20130613
  5. DIGITOXIN [Concomitant]
     Active Substance: DIGITOXIN
     Dosage: .07 DOSAGE FORMS DAILY; 1 DF= 1 AMPOULE
     Route: 042
     Dates: start: 20140129
  6. VERGENTAN [Concomitant]
     Indication: NAUSEA
     Dosage: 50 MILLIGRAM DAILY;
     Route: 048
     Dates: start: 20140211, end: 20140217
  7. METOCLOPRAMID [Concomitant]
     Active Substance: METOCLOPRAMIDE
     Indication: NAUSEA
     Dosage: 10 MILLIGRAM DAILY;
     Route: 042
     Dates: start: 20140228, end: 20140301
  8. TAZOBACTAM [Concomitant]
     Active Substance: TAZOBACTAM
     Indication: NEUTROPHIL COUNT DECREASED
     Route: 042
     Dates: start: 20160304, end: 20160305
  9. RITUXIMAB [Suspect]
     Active Substance: RITUXIMAB
     Dosage: LAST DOSE PRIOR TO SAE: 19-FEB-2014
     Route: 042
     Dates: start: 20140107, end: 20140703
  10. GRANISETRON [Concomitant]
     Active Substance: GRANISETRON
     Indication: VOMITING
     Route: 042
  11. DEXAMETHASON [Concomitant]
     Active Substance: DEXAMETHASONE
     Dosage: 8 MILLIGRAM DAILY;
     Route: 042
     Dates: start: 20140219, end: 20140219
  12. MESNA. [Concomitant]
     Active Substance: MESNA
     Indication: CYSTITIS
     Dosage: 1200 MILLIGRAM DAILY;
     Route: 042
     Dates: start: 20140108, end: 20140108
  13. CLOTRIMAZOLE. [Concomitant]
     Active Substance: CLOTRIMAZOLE
     Indication: INFECTION
     Dosage: 960 MILLIGRAM DAILY;
     Route: 048
     Dates: start: 20140108, end: 20130523
  14. PANTOPRAZOL [Concomitant]
     Active Substance: PANTOPRAZOLE SODIUM
     Indication: GASTRITIS
     Dosage: 40 MILLIGRAM DAILY;
     Route: 048
     Dates: start: 201203
  15. ARAVA [Concomitant]
     Active Substance: LEFLUNOMIDE
     Indication: RHEUMATOID ARTHRITIS
     Route: 048
     Dates: start: 199909, end: 20140128
  16. BISOPROLOL [Concomitant]
     Active Substance: BISOPROLOL
     Indication: HYPERTENSION
     Dosage: 10 MILLIGRAM DAILY;
     Dates: start: 201002
  17. VERGENTAN [Concomitant]
     Dosage: 50 MILLIGRAM DAILY;
     Route: 048
     Dates: start: 20140221
  18. VERGENTAN [Concomitant]
     Dosage: 100 MILLIGRAM DAILY;
     Route: 048
     Dates: start: 20140305
  19. METOCLOPRAMID [Concomitant]
     Active Substance: METOCLOPRAMIDE
     Dosage: 10 MILLIGRAM DAILY;
     Route: 042
     Dates: start: 20140218, end: 20140220
  20. PREDNISOLONE. [Suspect]
     Active Substance: PREDNISOLONE
     Indication: DIFFUSE LARGE B-CELL LYMPHOMA
     Route: 065
     Dates: end: 20140703
  21. MESNA. [Concomitant]
     Active Substance: MESNA
     Dosage: 1200 MILLIGRAM DAILY;
     Route: 042
     Dates: start: 20140121, end: 20140121
  22. SIMVASTATIN. [Concomitant]
     Active Substance: SIMVASTATIN
     Indication: HYPERCHOLESTEROLAEMIA
     Dosage: 20 MILLIGRAM DAILY;
     Dates: start: 201004
  23. DIGITOXIN [Concomitant]
     Active Substance: DIGITOXIN
     Indication: ATRIAL FLUTTER
     Dosage: .25 DOSAGE FORMS DAILY; 1 DF= 1 AMPOULE
     Route: 042
     Dates: start: 20140128, end: 20140128
  24. MESNA. [Concomitant]
     Active Substance: MESNA
     Dosage: 1200 MILLIGRAM DAILY;
     Route: 042
     Dates: start: 20140204, end: 20140204
  25. AMPHO MORONAL [Concomitant]
     Active Substance: AMPHOTERICIN B
     Indication: PROPHYLAXIS
     Dates: start: 20130524, end: 20130528
  26. CLEXANE [Concomitant]
     Active Substance: ENOXAPARIN SODIUM
     Indication: ATRIAL FLUTTER
     Dosage: .9 DOSAGE FORMS DAILY; 1 DF= 1 AMPOULE
     Route: 058
     Dates: start: 20140128
  27. VERGENTAN [Concomitant]
     Dosage: 50 MILLIGRAM DAILY;
     Route: 048
     Dates: start: 20140218, end: 20140220
  28. AMINOVEN [Concomitant]
     Active Substance: AMINO ACIDS
     Indication: NAUSEA
     Dosage: 100 ML DAILY;
     Route: 042
     Dates: start: 20140218, end: 20140220
  29. VINCRISTINE [Suspect]
     Active Substance: VINCRISTINE
     Indication: DIFFUSE LARGE B-CELL LYMPHOMA
     Route: 065
     Dates: end: 20140703
  30. DOXORUBICIN [Suspect]
     Active Substance: DOXORUBICIN
     Indication: DIFFUSE LARGE B-CELL LYMPHOMA
     Route: 065
     Dates: end: 20140703
  31. CLOTRIMAZOLE. [Concomitant]
     Active Substance: CLOTRIMAZOLE
     Dates: start: 20130613, end: 20130613
  32. AMPHO MORONAL [Concomitant]
     Active Substance: AMPHOTERICIN B
     Indication: MUCOSAL INFLAMMATION
     Dosage: 100 MILLIGRAM DAILY;
     Route: 048
     Dates: start: 20140108
  33. TAZOBACTAM [Concomitant]
     Active Substance: TAZOBACTAM
     Indication: WHITE BLOOD CELL COUNT DECREASED
  34. AZULFIDINE [Concomitant]
     Active Substance: SULFASALAZINE
     Indication: RHEUMATOID ARTHRITIS
     Route: 048
     Dates: start: 201402
  35. PARACETAMOL [Concomitant]
     Active Substance: ACETAMINOPHEN
     Indication: HYPERSENSITIVITY
     Dosage: 1000 MILLIGRAM DAILY;
     Route: 048
     Dates: start: 20140107, end: 20140107
  36. PARACETAMOL [Concomitant]
     Active Substance: ACETAMINOPHEN
     Dosage: 1000 MILLIGRAM DAILY;
     Route: 048
     Dates: start: 20140204, end: 20140204
  37. PARACETAMOL [Concomitant]
     Active Substance: ACETAMINOPHEN
     Dosage: 1000 MILLIGRAM DAILY;
     Route: 048
     Dates: start: 20140219, end: 20140219
  38. DEXAMETHASON [Concomitant]
     Active Substance: DEXAMETHASONE
     Indication: VOMITING
     Dosage: 8 MILLIGRAM DAILY;
     Route: 042
     Dates: start: 20140108, end: 20140108
  39. VOCADO [Concomitant]
     Active Substance: AMLODIPINE BESYLATE\OLMESARTAN MEDOXOMIL
     Indication: HYPERTENSION
     Dosage: 40/10/25 MG
     Route: 048
     Dates: start: 201002
  40. METOCLOPRAMID [Concomitant]
     Active Substance: METOCLOPRAMIDE
     Dosage: 4 MILLIGRAM DAILY;
     Route: 048
     Dates: start: 20140221, end: 20140225
  41. TRAVEGIL [Concomitant]
     Dosage: 2 MILLIGRAM DAILY;
     Route: 042
     Dates: start: 20140107, end: 20160107
  42. PARACETAMOL [Concomitant]
     Active Substance: ACETAMINOPHEN
     Dosage: 1000 MILLIGRAM DAILY;
     Route: 048
     Dates: start: 20140121, end: 20140121
  43. DEXAMETHASON [Concomitant]
     Active Substance: DEXAMETHASONE
     Dosage: 8 MILLIGRAM DAILY;
     Route: 042
     Dates: start: 20140121, end: 20140121
  44. DEXAMETHASON [Concomitant]
     Active Substance: DEXAMETHASONE
     Dosage: 8 MILLIGRAM DAILY;
     Route: 042
     Dates: start: 20140204, end: 20140204
  45. MOXONIDIN [Concomitant]
     Active Substance: MOXONIDINE
     Indication: HYPERTENSION
     Route: 048
     Dates: start: 201002
  46. PRADAX [Concomitant]
     Active Substance: DABIGATRAN ETEXILATE MESYLATE
     Indication: CORONARY ARTERY DISEASE
     Dosage: 300 MILLIGRAM DAILY;
     Route: 048
     Dates: start: 201505, end: 20140127
  47. CYCLOPHOSPHAMID [Suspect]
     Active Substance: CYCLOPHOSPHAMIDE
     Indication: DIFFUSE LARGE B-CELL LYMPHOMA
     Route: 065
     Dates: end: 20140703
  48. ALLOPURINOL. [Concomitant]
     Active Substance: ALLOPURINOL
     Indication: TUMOUR LYSIS SYNDROME
     Route: 048
  49. TRAVEGIL [Concomitant]
     Dosage: 2 MILLIGRAM DAILY;
     Route: 042
     Dates: start: 20140121, end: 20160121
  50. INDAPAMID [Concomitant]
     Active Substance: INDAPAMIDE
     Indication: HYPERTENSION
     Dosage: 1.5 MILLIGRAM DAILY;
     Route: 048
     Dates: start: 201002
  51. SPIRONOLACTON [Concomitant]
     Active Substance: SPIRONOLACTONE
     Indication: HYPERTENSION
     Dosage: 50 MILLIGRAM DAILY;
     Route: 048
     Dates: start: 20140108, end: 20140111
  52. VALSARTAN. [Concomitant]
     Active Substance: VALSARTAN
     Dosage: 80 MILLIGRAM DAILY;
     Route: 048
     Dates: start: 201205
  53. AMINOVEN [Concomitant]
     Active Substance: AMINO ACIDS
     Indication: DECREASED APPETITE
     Dosage: 100 ML DAILY;
     Route: 042
     Dates: start: 20140228, end: 20140301

REACTIONS (3)
  - Anaemia [Recovered/Resolved]
  - White blood cell count decreased [Recovered/Resolved]
  - Neutrophil count decreased [Recovered/Resolved]

NARRATIVE: CASE EVENT DATE: 20140124
